FAERS Safety Report 7979296-5 (Version None)
Quarter: 2011Q4

REPORT INFORMATION
  Report Type: 
  Country: None (occurrence: None)
  Receive Date: 20111214
  Receipt Date: 20111206
  Transmission Date: 20120403
  Serious: Yes (Hospitalization)
  Sender: FDA-Public Use
  Company Number: US-BAYER-2011-099490

PATIENT
  Age: 26 Year
  Sex: Female
  Weight: 87.075 kg

DRUGS (2)
  1. LABETALOL HCL [Concomitant]
     Indication: HYPERTENSION
     Dosage: 400 MG, BID
     Route: 048
     Dates: start: 20070101
  2. MIRENA [Suspect]
     Indication: CONTRACEPTION
     Dosage: UNK
     Route: 015
     Dates: start: 20110113

REACTIONS (4)
  - PREGNANCY WITH CONTRACEPTIVE DEVICE [None]
  - DEVICE DISLOCATION [None]
  - MENSTRUATION DELAYED [None]
  - DEVICE BREAKAGE [None]
